FAERS Safety Report 24604368 (Version 1)
Quarter: 2024Q4

REPORT INFORMATION
  Report Type: Spontaneous
  Country: DE (occurrence: DE)
  Receive Date: 20241111
  Receipt Date: 20241111
  Transmission Date: 20250115
  Serious: Yes (Hospitalization, Other)
  Sender: ARGENX BVBA
  Company Number: DE-ARGENX-2024-ARGX-DE007359

PATIENT

DRUGS (5)
  1. VYVGART [Suspect]
     Active Substance: EFGARTIGIMOD ALFA-FCAB
     Indication: Myasthenia gravis
     Dosage: 1ST CYCLE
     Route: 042
     Dates: start: 20240206, end: 20240227
  2. VYVGART [Suspect]
     Active Substance: EFGARTIGIMOD ALFA-FCAB
     Dosage: 2ND CYCLE
     Route: 042
     Dates: start: 20240415, end: 20240506
  3. VYVGART [Suspect]
     Active Substance: EFGARTIGIMOD ALFA-FCAB
     Dosage: 3RD CYCLE
     Route: 042
     Dates: start: 20240613, end: 2024
  4. CORTISONE [Concomitant]
     Active Substance: CORTISONE
     Indication: Product used for unknown indication
     Route: 065
  5. AZATHIOPRINE [Concomitant]
     Active Substance: AZATHIOPRINE
     Indication: Product used for unknown indication
     Route: 065

REACTIONS (3)
  - Myasthenia gravis [Unknown]
  - Drug-genetic interaction [Unknown]
  - Therapeutic response shortened [Unknown]
